FAERS Safety Report 25985226 (Version 1)
Quarter: 2025Q4

REPORT INFORMATION
  Report Type: Spontaneous
  Country: US (occurrence: US)
  Receive Date: 20251031
  Receipt Date: 20251031
  Transmission Date: 20260118
  Serious: No
  Sender: Tarsus Pharmaceuticals
  Company Number: US-TARSUS PHARMACEUTICALS-TSP-US-2025-000820

PATIENT

DRUGS (7)
  1. XDEMVY [Suspect]
     Active Substance: LOTILANER
     Indication: Ocular demodicosis
     Dosage: 1 DROP, BID (1 DROP IN EACH EYE TWICE A DAY)
     Route: 047
     Dates: start: 202410
  2. XDEMVY [Suspect]
     Active Substance: LOTILANER
     Dosage: 1 DROP, BID (1 DROP IN EACH EYE TWICE A DAY)
     Route: 047
  3. XDEMVY [Suspect]
     Active Substance: LOTILANER
     Dosage: 1 DROP, BID (1 DROP IN EACH EYE TWICE A DAY)
     Route: 047
  4. XDEMVY [Suspect]
     Active Substance: LOTILANER
     Dosage: 1 DROP, BID (1 DROP IN EACH EYE TWICE A DAY)
     Route: 047
  5. XDEMVY [Suspect]
     Active Substance: LOTILANER
     Dosage: 1 DROP, BID (4TH WEEK OF 6 WEEK COURSE)
     Route: 047
     Dates: end: 20250820
  6. HYPOCHLOROUS ACID [Concomitant]
     Active Substance: HYPOCHLOROUS ACID
     Indication: Product used for unknown indication
     Dosage: UNK
     Route: 065
  7. TOBRADEX [Concomitant]
     Active Substance: DEXAMETHASONE\TOBRAMYCIN
     Indication: Product used for unknown indication
     Dosage: UNK
     Route: 065

REACTIONS (4)
  - Abnormal sensation in eye [Unknown]
  - Therapeutic response decreased [Unknown]
  - Disease recurrence [Unknown]
  - Ocular demodicosis [Unknown]
